FAERS Safety Report 8149532 (Version 2)
Quarter: 2013Q1

REPORT INFORMATION
  Report Type: Spontaneous
  Country: US (occurrence: US)
  Receive Date: 20110922
  Receipt Date: 20130307
  Transmission Date: 20140127
  Serious: No
  Sender: FDA-Public Use
  Company Number: US-ASTRAZENECA-2011SE21270

PATIENT
  Age: 66 Year
  Sex: Female
  Weight: 90.7 kg

DRUGS (9)
  1. SEROQUEL [Suspect]
     Indication: BIPOLAR DISORDER
     Route: 048
     Dates: end: 2011
  2. SEROQUEL [Suspect]
     Indication: BIPOLAR DISORDER
     Route: 048
     Dates: start: 2011
  3. SEROQUEL [Suspect]
     Indication: BIPOLAR DISORDER
     Dosage: TWO TIMES A DAY
     Route: 048
     Dates: start: 2009, end: 2012
  4. FENOFIBRATE [Concomitant]
  5. ZOLPIDEM [Concomitant]
     Indication: SLEEP DISORDER
  6. LISINOPRIL [Concomitant]
     Indication: RENAL DISORDER
  7. METFORMIN [Concomitant]
  8. LITHIUM [Concomitant]
     Indication: BIPOLAR DISORDER
     Route: 048
     Dates: start: 1980
  9. LAMOTRIGINE [Concomitant]

REACTIONS (8)
  - Diabetes mellitus [Not Recovered/Not Resolved]
  - Renal disorder [Unknown]
  - Polydipsia [Unknown]
  - Hyperphagia [Unknown]
  - Impaired healing [Unknown]
  - Performance status decreased [Recovered/Resolved]
  - Dry mouth [Unknown]
  - Weight increased [Unknown]
